FAERS Safety Report 8611698 (Version 2)
Quarter: 2013Q1

REPORT INFORMATION
  Report Type: Spontaneous
  Country: US (occurrence: US)
  Receive Date: 20120613
  Receipt Date: 20130205
  Transmission Date: 20140127
  Serious: Yes (Other)
  Sender: FDA-Public Use
  Company Number: US-ASTRAZENECA-2012SE38157

PATIENT
  Sex: Male

DRUGS (2)
  1. SEROQUEL [Suspect]
     Route: 048
     Dates: start: 2005
  2. LITHIUM [Concomitant]

REACTIONS (5)
  - Pancreatitis [Unknown]
  - Diabetes mellitus [Unknown]
  - Fall [Unknown]
  - Foot fracture [Unknown]
  - Somnolence [Unknown]
